FAERS Safety Report 24745129 (Version 3)
Quarter: 2025Q1

REPORT INFORMATION
  Report Type: Spontaneous
  Country: CO (occurrence: CO)
  Receive Date: 20241217
  Receipt Date: 20250131
  Transmission Date: 20250408
  Serious: Yes (Life-Threatening, Hospitalization)
  Sender: GE HEALTHCARE
  Company Number: CO-GE HEALTHCARE-2024CSU014321

PATIENT
  Age: 1 Month
  Sex: Male

DRUGS (1)
  1. OMNIPAQUE [Suspect]
     Active Substance: IOHEXOL
     Indication: Haemodynamic test
     Route: 042
     Dates: start: 20241119, end: 20241119

REACTIONS (3)
  - Pulmonary oedema [Unknown]
  - Overdose [Unknown]
  - Device issue [Unknown]

NARRATIVE: CASE EVENT DATE: 20241119
